FAERS Safety Report 10253904 (Version 2)
Quarter: 2014Q2

REPORT INFORMATION
  Report Type: Spontaneous
  Country: BR (occurrence: BR)
  Receive Date: 20140623
  Receipt Date: 20140623
  Transmission Date: 20141212
  Serious: Yes (Other)
  Sender: FDA-Public Use
  Company Number: BR-PFIZER INC-2014159526

PATIENT
  Age: 35 Year
  Sex: Female
  Weight: 69 kg

DRUGS (1)
  1. DEPO-PROVERA [Suspect]
     Indication: CONTRACEPTION
     Dosage: 150 MG, EVERY 3 MONTHS (QUARTERLY)
     Dates: start: 2007, end: 2013

REACTIONS (4)
  - Pain in extremity [Recovering/Resolving]
  - Rash macular [Recovered/Resolved]
  - Haematoma [Recovering/Resolving]
  - Movement disorder [Unknown]
